FAERS Safety Report 7933349-6 (Version None)
Quarter: 2011Q4

REPORT INFORMATION
  Report Type: 
  Country: None (occurrence: None)
  Receive Date: 20111122
  Receipt Date: 20111121
  Transmission Date: 20120403
  Serious: Yes (Death)
  Sender: FDA-Public Use
  Company Number: BR-B.I. PHARMACEUTICALS,INC./RIDGEFIELD-2011-BR-01256BR

PATIENT
  Age: 83 Year
  Sex: Male

DRUGS (4)
  1. BAMBAIR [Concomitant]
  2. DUOVENT [Concomitant]
  3. BAMIFIX [Concomitant]
  4. SPIRIVA RESPIMAT [Suspect]
     Indication: EMPHYSEMA
     Dates: start: 20101201, end: 20111001

REACTIONS (1)
  - RESPIRATORY ARREST [None]
